FAERS Safety Report 4884650-4 (Version None)
Quarter: 2005Q4

REPORT INFORMATION
  Report Type: 
  Country: None (occurrence: None)
  Receive Date: 20051201
  Receipt Date: 20050920
  Transmission Date: 20060501
  Serious: No
  Sender: FDA-Public Use
  Company Number: 2005PV002371

PATIENT
  Age: 51 Year
  Sex: Female
  Weight: 125.1928 kg

DRUGS (15)
  1. BYETTA [Suspect]
     Indication: DIABETES MELLITUS NON-INSULIN-DEPENDENT
     Dosage: 5 MCG; BID; SC
     Route: 058
     Dates: start: 20050920
  2. LANTUS [Concomitant]
  3. HUMULIN N [Concomitant]
  4. HUMALOG [Concomitant]
  5. GLUCOPHAGE [Concomitant]
  6. ASPIRIN [Concomitant]
  7. KLOR-CON [Concomitant]
  8. LASIX [Concomitant]
  9. LIPITOR [Concomitant]
  10. PLAVIX [Concomitant]
  11. ATENOLOL [Concomitant]
  12. LISINOPRIL [Concomitant]
  13. ZELNORM [Concomitant]
  14. ALPRAZOLAM [Concomitant]
  15. AVANDIA [Concomitant]

REACTIONS (4)
  - BLOOD GLUCOSE INCREASED [None]
  - DIZZINESS [None]
  - FEELING HOT [None]
  - FEELING JITTERY [None]
